FAERS Safety Report 18151904 (Version 1)
Quarter: 2020Q3

REPORT INFORMATION
  Report Type: Spontaneous
  Country: US (occurrence: US)
  Receive Date: 20200814
  Receipt Date: 20200814
  Transmission Date: 20201103
  Serious: Yes (Other)
  Sender: FDA-Public Use
  Company Number: US-PURDUE-USA-2020-0160859

PATIENT

DRUGS (3)
  1. MORPHINE SULFATE (SIMILAR TO NDA 19?516) [Suspect]
     Active Substance: MORPHINE SULFATE
     Indication: KIDNEY INFECTION
     Dosage: UNK
     Route: 048
     Dates: start: 1998
  2. OXYCODONE HYDROCHLORIDE (SIMILAR TO NDA 22?272) [Suspect]
     Active Substance: OXYCODONE HYDROCHLORIDE
     Indication: KIDNEY INFECTION
     Dosage: UNK
     Route: 065
  3. DILAUDID [Suspect]
     Active Substance: HYDROMORPHONE HYDROCHLORIDE
     Indication: KIDNEY INFECTION
     Dosage: UNK
     Route: 048

REACTIONS (5)
  - Cardiac failure [Unknown]
  - Respiratory failure [Unknown]
  - Mental impairment [Unknown]
  - Overdose [Unknown]
  - Drug dependence [Unknown]
